FAERS Safety Report 6788160-9 (Version None)
Quarter: 2010Q2

REPORT INFORMATION
  Report Type: 
  Country: None (occurrence: None)
  Receive Date: 20100623
  Receipt Date: 20080110
  Transmission Date: 20101027
  Serious: No
  Sender: FDA-Public Use
  Company Number: US-PFIZER INC-2008003246

PATIENT
  Sex: Female

DRUGS (2)
  1. AROMASIL [Suspect]
  2. CELEBREX [Interacting]

REACTIONS (2)
  - CONTUSION [None]
  - DRUG INTERACTION [None]
